FAERS Safety Report 13535174 (Version 2)
Quarter: 2017Q3

REPORT INFORMATION
  Report Type: Spontaneous
  Country: US (occurrence: US)
  Receive Date: 20170511
  Receipt Date: 20170810
  Transmission Date: 20171127
  Serious: No
  Sender: FDA-Public Use
  Company Number: US-VIFOR (INTERNATIONAL) INC.-VIT-2017-01884

PATIENT
  Sex: Female

DRUGS (12)
  1. VELTASSA [Suspect]
     Active Substance: PATIROMER
     Indication: HYPERKALAEMIA
     Route: 048
     Dates: start: 20161214
  2. NOVOLOG MIX FLEXPEN [Concomitant]
     Dosage: 70/30
     Dates: start: 20161213
  3. PROCRIT [Concomitant]
     Active Substance: ERYTHROPOIETIN
  4. TRAVATAN Z [Concomitant]
     Active Substance: TRAVOPROST
     Dates: start: 20161213
  5. ERGOCALCIFEROL. [Concomitant]
     Active Substance: ERGOCALCIFEROL
  6. HYDRALAZINE [Concomitant]
     Active Substance: HYDRALAZINE HYDROCHLORIDE
     Dates: start: 20161213
  7. DOXAZOSIN [Concomitant]
     Active Substance: DOXAZOSIN\DOXAZOSIN MESYLATE
  8. ATORVASTATIN [Concomitant]
     Active Substance: ATORVASTATIN
     Dates: start: 20170118
  9. FERROUS SULFATE. [Concomitant]
     Active Substance: FERROUS SULFATE
     Dosage: 300/5 ML
     Dates: start: 20161213
  10. CLONIDINE. [Concomitant]
     Active Substance: CLONIDINE
     Dates: start: 20170118
  11. VALSARTAN. [Concomitant]
     Active Substance: VALSARTAN
     Dates: start: 20170118
  12. GLIPIZIDE. [Concomitant]
     Active Substance: GLIPIZIDE
     Dates: start: 20161213

REACTIONS (3)
  - Insomnia [Not Recovered/Not Resolved]
  - Constipation [Not Recovered/Not Resolved]
  - Alopecia [Not Recovered/Not Resolved]

NARRATIVE: CASE EVENT DATE: 2017
